FAERS Safety Report 10949570 (Version 1)
Quarter: 2015Q1

REPORT INFORMATION
  Report Type: Spontaneous
  Country: US (occurrence: None)
  Receive Date: 20150323
  Receipt Date: 20150323
  Transmission Date: 20150721
  Serious: Yes (Other)
  Sender: FDA-Public Use
  Company Number: None

PATIENT
  Age: 20 Year
  Sex: Female
  Weight: 51.26 kg

DRUGS (3)
  1. AUSTRALIAN GOLD BROAD SPECTRUM 30 [Suspect]
     Active Substance: AVOBENZONE\HOMOSALATE\OCTISALATE\OCTOCRYLENE\OXYBENZONE
     Indication: PROPHYLAXIS AGAINST SOLAR RADIATION
     Dosage: APPLIED TO A SURFACE, USUALLY THE SKIN
     Route: 061
     Dates: start: 20150317, end: 20150317
  2. VITAMINS [Concomitant]
     Active Substance: VITAMINS
  3. AUSTRALIAN GOLD BROAD SPECTRUM 30 [Suspect]
     Active Substance: AVOBENZONE\HOMOSALATE\OCTISALATE\OCTOCRYLENE\OXYBENZONE
     Indication: THERAPEUTIC SKIN CARE TOPICAL
     Dosage: APPLIED TO A SURFACE, USUALLY THE SKIN
     Route: 061
     Dates: start: 20150317, end: 20150317

REACTIONS (4)
  - Application site reaction [None]
  - Application site exfoliation [None]
  - Application site ulcer [None]
  - Expired product administered [None]

NARRATIVE: CASE EVENT DATE: 20150317
